FAERS Safety Report 19328526 (Version 1)
Quarter: 2021Q2

REPORT INFORMATION
  Report Type: Spontaneous
  Country: IN (occurrence: IN)
  Receive Date: 20210528
  Receipt Date: 20210528
  Transmission Date: 20210717
  Serious: Yes (Death, Hospitalization)
  Sender: FDA-Public Use
  Company Number: IN-MYLANLABS-2021M1031290

PATIENT
  Age: 55 Year
  Sex: Male

DRUGS (5)
  1. BORTEZOMIB. [Suspect]
     Active Substance: BORTEZOMIB
     Dosage: MAINTENANCE THERAPY
     Route: 065
     Dates: start: 201810
  2. DEXAMETHASONE. [Suspect]
     Active Substance: DEXAMETHASONE
     Indication: PLASMA CELL MYELOMA
     Dosage: INITIAL DOSAGE NOT STATED; RECEIVED 6 CYCLES
     Route: 065
     Dates: start: 2018
  3. BORTEZOMIB. [Suspect]
     Active Substance: BORTEZOMIB
     Indication: PLASMA CELL MYELOMA
     Dosage: RECEIVED 6 CYCLES
     Route: 065
     Dates: start: 2018
  4. DEXAMETHASONE. [Suspect]
     Active Substance: DEXAMETHASONE
     Dosage: MAINTENANCE THERAPY
     Route: 065
     Dates: start: 201810
  5. MELPHALAN. [Suspect]
     Active Substance: MELPHALAN
     Indication: IMMUNOSUPPRESSANT DRUG THERAPY
     Dosage: UNK
     Route: 065
     Dates: start: 201902

REACTIONS (9)
  - Metapneumovirus infection [Fatal]
  - Febrile neutropenia [Fatal]
  - Acute kidney injury [Fatal]
  - Shock [Fatal]
  - Acute respiratory distress syndrome [Fatal]
  - Sepsis [Unknown]
  - Klebsiella infection [Unknown]
  - Mucosal inflammation [Recovered/Resolved]
  - Atrial fibrillation [Recovered/Resolved]
